FAERS Safety Report 6206167-7 (Version None)
Quarter: 2009Q2

REPORT INFORMATION
  Report Type: 
  Country: None (occurrence: None)
  Receive Date: 20090528
  Receipt Date: 20080731
  Transmission Date: 20091009
  Serious: No
  Sender: FDA-Public Use
  Company Number: US-KINGPHARMUSA00001-K200800923

PATIENT
  Sex: Male
  Weight: 285 kg

DRUGS (8)
  1. AVINZA [Suspect]
     Dosage: 60 MG, UNK
     Dates: start: 20080630
  2. AVINZA [Suspect]
     Dosage: 30 MG, UNK
     Dates: start: 20080626, end: 20080629
  3. TOPROL-XL [Concomitant]
  4. ZESTRIL [Concomitant]
  5. CYMBALTA [Concomitant]
  6. LEXAPRO [Concomitant]
  7. LIPITOR [Concomitant]
  8. DOXYCYCLINE [Concomitant]

REACTIONS (1)
  - PARAESTHESIA ORAL [None]
